FAERS Safety Report 13838636 (Version 7)
Quarter: 2020Q4

REPORT INFORMATION
  Report Type: Report from Study
  Country: CO (occurrence: CO)
  Receive Date: 20170807
  Receipt Date: 20201126
  Transmission Date: 20210113
  Serious: Yes (Hospitalization)
  Sender: FDA-Public Use
  Company Number: PHHY2017CO113587

PATIENT
  Age: 59 Year
  Sex: Female
  Weight: 76 kg

DRUGS (14)
  1. OMEPRAZOLE. [Suspect]
     Active Substance: OMEPRAZOLE
     Indication: PRODUCT USED FOR UNKNOWN INDICATION
     Dosage: UNK
     Route: 065
  2. ACETAMINOPHEN. [Concomitant]
     Active Substance: ACETAMINOPHEN
     Indication: PRODUCT USED FOR UNKNOWN INDICATION
     Dosage: UNK
     Route: 065
  3. REVOLADE [Suspect]
     Active Substance: ELTROMBOPAG
     Dosage: 75 MG
     Route: 048
     Dates: start: 201708
  4. METROPIN [Concomitant]
     Indication: PRODUCT USED FOR UNKNOWN INDICATION
     Dosage: UNK
     Route: 065
  5. REVOLADE [Suspect]
     Active Substance: ELTROMBOPAG
     Dosage: 50 MG, QD
     Route: 048
     Dates: end: 20200609
  6. ACICLOVIR [Suspect]
     Active Substance: ACYCLOVIR
     Indication: PRODUCT USED FOR UNKNOWN INDICATION
     Dosage: UNK
     Route: 065
  7. ERYTHROPOIETIN [Concomitant]
     Active Substance: ERYTHROPOIETIN
     Indication: PRODUCT USED FOR UNKNOWN INDICATION
     Dosage: UNK
     Route: 065
  8. DANAZOL. [Concomitant]
     Active Substance: DANAZOL
     Indication: IMMUNE THROMBOCYTOPENIA
     Dosage: UNK
     Route: 048
     Dates: start: 2017, end: 2020
  9. REVOLADE [Suspect]
     Active Substance: ELTROMBOPAG
     Indication: IMMUNE THROMBOCYTOPENIA
     Dosage: 2 DF, EVERY 3 HOURS
     Route: 048
     Dates: start: 20170517
  10. CYCLOSPORINE. [Suspect]
     Active Substance: CYCLOSPORINE
     Dosage: 50 MG
     Route: 065
  11. FLUCONAZOLE. [Suspect]
     Active Substance: FLUCONAZOLE
     Indication: PRODUCT USED FOR UNKNOWN INDICATION
     Dosage: UNK
     Route: 065
  12. REVOLADE [Suspect]
     Active Substance: ELTROMBOPAG
     Dosage: 25 MG, QD
     Route: 048
     Dates: start: 20200610
  13. CYCLOSPORINE. [Suspect]
     Active Substance: CYCLOSPORINE
     Indication: IMMUNE THROMBOCYTOPENIA
     Dosage: 100 MG, QD
     Route: 048
     Dates: start: 2017
  14. FUROSEMIDE. [Suspect]
     Active Substance: FUROSEMIDE
     Indication: PRODUCT USED FOR UNKNOWN INDICATION
     Dosage: UNK
     Route: 065

REACTIONS (13)
  - Platelet count decreased [Recovered/Resolved]
  - Decreased immune responsiveness [Unknown]
  - Nasopharyngitis [Not Recovered/Not Resolved]
  - Hypersomnia [Unknown]
  - Dizziness [Not Recovered/Not Resolved]
  - Pallor [Unknown]
  - Skin discolouration [Unknown]
  - Product use in unapproved indication [Unknown]
  - Haemoglobin decreased [Unknown]
  - Serum ferritin increased [Unknown]
  - Psychiatric symptom [Unknown]
  - Petechiae [Unknown]
  - Inappropriate schedule of product administration [Unknown]

NARRATIVE: CASE EVENT DATE: 2017
